FAERS Safety Report 20974552 (Version 1)
Quarter: 2022Q2

REPORT INFORMATION
  Report Type: Spontaneous
  Country: US (occurrence: None)
  Receive Date: 20220616
  Receipt Date: 20220616
  Transmission Date: 20220721
  Serious: Yes (Other)
  Sender: FDA-Public Use
  Company Number: None

PATIENT
  Age: 68 Year
  Sex: Female
  Weight: 106.65 kg

DRUGS (2)
  1. VYVGART [Suspect]
     Active Substance: EFGARTIGIMOD ALFA-FCAB
     Dosage: OTHER FREQUENCY : EVERY 7 DAYS X4DOS;?
     Route: 041
     Dates: start: 20220518, end: 20220611
  2. Sodium Chloride 0.9% 100mL [Concomitant]
     Dates: start: 20220518, end: 20220611

REACTIONS (4)
  - Oropharyngeal pain [None]
  - Pharyngeal swelling [None]
  - Pyrexia [None]
  - Oral candidiasis [None]

NARRATIVE: CASE EVENT DATE: 20220610
